FAERS Safety Report 21676496 (Version 1)
Quarter: 2022Q4

REPORT INFORMATION
  Report Type: Spontaneous
  Country: JP (occurrence: JP)
  Receive Date: 20221202
  Receipt Date: 20221202
  Transmission Date: 20230113
  Serious: Yes (Hospitalization, Other)
  Sender: FDA-Public Use
  Company Number: JP-009507513-2211JPN009717

PATIENT
  Age: 65 Year
  Sex: Male

DRUGS (1)
  1. PEMBROLIZUMAB [Suspect]
     Active Substance: PEMBROLIZUMAB
     Indication: Lung adenocarcinoma
     Dosage: 4 MILLIGRAM/KILOGRAM, Q3W; DISCONTINUED AFTER 7 CYCLES
     Dates: start: 2020, end: 202010

REACTIONS (4)
  - Glomerulonephritis membranous [Recovering/Resolving]
  - Tubulointerstitial nephritis [Recovering/Resolving]
  - Anti-glomerular basement membrane antibody [Recovering/Resolving]
  - Product use issue [Unknown]

NARRATIVE: CASE EVENT DATE: 20200101
